FAERS Safety Report 24085646 (Version 1)
Quarter: 2024Q3

REPORT INFORMATION
  Report Type: Report from Study
  Country: US (occurrence: US)
  Receive Date: 20240712
  Receipt Date: 20240712
  Transmission Date: 20241017
  Serious: Yes (Hospitalization, Other)
  Sender: MERCK
  Company Number: US-009507513-2405USA007320

PATIENT
  Age: 88 Year
  Sex: Male

DRUGS (2)
  1. MOLNUPIRAVIR [Suspect]
     Active Substance: MOLNUPIRAVIR
     Indication: COVID-19 treatment
     Dosage: 4 TABLETS IN THE MORNING, 4 TABLETS IN THE EVENING FOR A TOTAL OF 8 TABLERS PER DAY
     Route: 048
     Dates: start: 202404
  2. PRADAXA [Concomitant]
     Active Substance: DABIGATRAN ETEXILATE MESYLATE
     Dosage: UNK

REACTIONS (4)
  - Gastrointestinal haemorrhage [Recovered/Resolved]
  - Rehabilitation therapy [Unknown]
  - Cough [Unknown]
  - Incorrect product administration duration [Unknown]

NARRATIVE: CASE EVENT DATE: 20240101
